FAERS Safety Report 25263722 (Version 2)
Quarter: 2025Q2

REPORT INFORMATION
  Report Type: Report from Study
  Country: US (occurrence: US)
  Receive Date: 20250502
  Receipt Date: 20250513
  Transmission Date: 20250717
  Serious: Yes (Other)
  Sender: NOVARTIS
  Company Number: US-002147023-NVSC2025US070901

PATIENT
  Sex: Female

DRUGS (2)
  1. MAYZENT [Suspect]
     Active Substance: SIPONIMOD
     Indication: Multiple sclerosis
     Route: 048
  2. MAYZENT [Suspect]
     Active Substance: SIPONIMOD
     Route: 065
     Dates: start: 20250506

REACTIONS (6)
  - Lower respiratory tract infection [Unknown]
  - Illness [Unknown]
  - Gastrointestinal disorder [Unknown]
  - Hypersensitivity [Unknown]
  - Upper respiratory tract infection [Unknown]
  - Eczema [Unknown]
